FAERS Safety Report 7098481-0 (Version None)
Quarter: 2010Q4

REPORT INFORMATION
  Report Type: 
  Country: None (occurrence: None)
  Receive Date: 20101110
  Receipt Date: 20101110
  Transmission Date: 20110411
  Serious: Yes (Hospitalization, Other)
  Sender: FDA-Public Use
  Company Number: None

PATIENT
  Age: 55 Year
  Sex: Male
  Weight: 100.2 kg

DRUGS (2)
  1. CIPROFLOXACIN [Suspect]
     Dosage: 500 MG BID PO
     Route: 048
     Dates: start: 20100917, end: 20100917
  2. PHENAZOPYRIDINE HCL TAB [Suspect]
     Dosage: 200 MG TID PO
     Route: 048
     Dates: start: 20100917, end: 20100917

REACTIONS (6)
  - ANAPHYLACTIC REACTION [None]
  - DIZZINESS [None]
  - DYSPHAGIA [None]
  - FLUSHING [None]
  - FORMICATION [None]
  - PARAESTHESIA [None]
